FAERS Safety Report 21422373 (Version 1)
Quarter: 2022Q4

REPORT INFORMATION
  Report Type: Spontaneous
  Country: None (occurrence: FR)
  Receive Date: 20221007
  Receipt Date: 20221007
  Transmission Date: 20230113
  Serious: Yes (Life-Threatening, Hospitalization, Other)
  Sender: FDA-Public Use
  Company Number: FR-B.Braun Medical Inc.-2133551

PATIENT
  Age: 74 Year
  Sex: Male
  Weight: 73 kg

DRUGS (6)
  1. METRONIDAZOLE [Suspect]
     Active Substance: METRONIDAZOLE
  2. AUGMENTIN [Suspect]
     Active Substance: AMOXICILLIN\CLAVULANATE POTASSIUM
  3. GENTAMICIN [Suspect]
     Active Substance: GENTAMICIN
  4. CORDARONE [Suspect]
     Active Substance: AMIODARONE HYDROCHLORIDE
  5. CEFOTAXIME SODIUM [Suspect]
     Active Substance: CEFOTAXIME SODIUM
  6. PIPERACILLIN SODIUM\TAZOBACTAM SODIUM [Suspect]
     Active Substance: PIPERACILLIN SODIUM\TAZOBACTAM SODIUM

REACTIONS (1)
  - Acute generalised exanthematous pustulosis [Recovering/Resolving]
